FAERS Safety Report 5319927-1 (Version None)
Quarter: 2007Q2

REPORT INFORMATION
  Report Type: 
  Country: None (occurrence: None)
  Receive Date: 20070509
  Receipt Date: 20070502
  Transmission Date: 20071010
  Serious: Yes (Life-Threatening, Hospitalization)
  Sender: FDA-Public Use
  Company Number: US-NOVOPROD-263365

PATIENT
  Sex: Female
  Weight: 72.562 kg

DRUGS (7)
  1. NOVOLOG MIX 70/30 [Suspect]
     Indication: INSULIN-REQUIRING TYPE II DIABETES MELLITUS
     Dosage: SLIDING SCALE
     Route: 058
     Dates: start: 19940101
  2. CYMBALTA [Concomitant]
     Indication: ILL-DEFINED DISORDER
     Route: 048
  3. LISINOPRIL                         /00894002/ [Concomitant]
     Indication: HYPERTENSION
     Route: 048
  4. TEMAZEPAM [Concomitant]
     Indication: ILL-DEFINED DISORDER
     Route: 048
  5. PROTONIX                           /01263201/ [Concomitant]
     Indication: ILL-DEFINED DISORDER
     Route: 048
  6. GABAPENTIN [Concomitant]
     Indication: ILL-DEFINED DISORDER
     Route: 048
  7. ASPIRIN [Concomitant]
     Indication: ANTICOAGULANT THERAPY
     Route: 048

REACTIONS (3)
  - CONVULSION [None]
  - NERVOUS SYSTEM DISORDER [None]
  - PULSE ABSENT [None]
